FAERS Safety Report 6691757-8 (Version None)
Quarter: 2010Q2

REPORT INFORMATION
  Report Type: 
  Country: None (occurrence: None)
  Receive Date: 20100422
  Receipt Date: 20090810
  Transmission Date: 20101027
  Serious: No
  Sender: FDA-Public Use
  Company Number: US-ASTRAZENECA-2009SE07648

PATIENT
  Sex: Male

DRUGS (2)
  1. TOPROL-XL [Suspect]
     Route: 048
     Dates: start: 20090801, end: 20090801
  2. TOPROL-XL [Suspect]
     Route: 048
     Dates: start: 20090801

REACTIONS (3)
  - INITIAL INSOMNIA [None]
  - NIGHT SWEATS [None]
  - RESTLESSNESS [None]
